FAERS Safety Report 21996364 (Version 1)
Quarter: 2023Q1

REPORT INFORMATION
  Report Type: Spontaneous
  Country: US (occurrence: None)
  Receive Date: 20230214
  Receipt Date: 20230214
  Transmission Date: 20230417
  Serious: No
  Sender: FDA-Public Use
  Company Number: None

PATIENT
  Age: 45 Year
  Sex: Female

DRUGS (5)
  1. DIMETHYL FUMARATE [Suspect]
     Active Substance: DIMETHYL FUMARATE
     Indication: Multiple sclerosis
     Dosage: FREQUENCY : TWICE A DAY;?
     Route: 048
     Dates: start: 20220112, end: 20230214
  2. AMBIEN TABLETS [Concomitant]
  3. CYANOCOBALAMIN [Concomitant]
  4. CYMBALTA [Concomitant]
  5. VITAMIN D SOFTGELS [Concomitant]

REACTIONS (1)
  - Flushing [None]

NARRATIVE: CASE EVENT DATE: 20220112
